FAERS Safety Report 9936818 (Version 1)
Quarter: 2014Q1

REPORT INFORMATION
  Report Type: Spontaneous
  Country: US (occurrence: None)
  Receive Date: 20140110
  Receipt Date: 20140110
  Transmission Date: 20141002
  Serious: Yes (Death)
  Sender: FDA-Public Use
  Company Number: 163-22393-12113719

PATIENT
  Age: 79 Year
  Sex: Male

DRUGS (1)
  1. ISTODAX [Suspect]
     Indication: PERIPHERAL T-CELL LYMPHOMA UNSPECIFIED
     Dosage: 1 DOSE, UNK

REACTIONS (1)
  - Death [None]
